FAERS Safety Report 7889488-1 (Version None)
Quarter: 2011Q4

REPORT INFORMATION
  Report Type: 
  Country: None (occurrence: None)
  Receive Date: 20111103
  Receipt Date: 20111025
  Transmission Date: 20120403
  Serious: Yes (Hospitalization)
  Sender: FDA-Public Use
  Company Number: JP-EISAI INC-E2090-01814-SPO-JP

PATIENT
  Sex: Female

DRUGS (18)
  1. ZONISAMIDE [Suspect]
     Route: 048
     Dates: start: 20100924, end: 20101004
  2. PHENYLEPHRINE HYDROCHLORIDE [Concomitant]
  3. TEGRETOL [Suspect]
     Dates: start: 20100913, end: 20100923
  4. APRESOLINE [Concomitant]
  5. NICARDIPINE HCL [Concomitant]
  6. FRAGMIN [Concomitant]
     Dates: end: 20101020
  7. MARCAINE [Concomitant]
  8. DEPAKENE [Concomitant]
     Dates: start: 20101005, end: 20101110
  9. MAGNESOL [Concomitant]
  10. PHENYTOIN SODIUM CAP [Suspect]
     Route: 048
     Dates: start: 20100702, end: 20100912
  11. DIAZEPAM [Concomitant]
  12. LASIX [Concomitant]
  13. EPHEDRINE HYDROCHLORIDE [Concomitant]
  14. MANNITOL [Concomitant]
  15. GLYCEOL [Concomitant]
  16. PHENYTOIN SODIUM CAP [Concomitant]
  17. RADICUT [Concomitant]
  18. MIDAZOLAM [Concomitant]

REACTIONS (4)
  - GENERALISED ERYTHEMA [None]
  - PYREXIA [None]
  - LYMPHADENOPATHY [None]
  - HEPATIC FUNCTION ABNORMAL [None]
